FAERS Safety Report 23581593 (Version 2)
Quarter: 2024Q1

REPORT INFORMATION
  Report Type: Spontaneous
  Country: IN (occurrence: IN)
  Receive Date: 20240229
  Receipt Date: 20240313
  Transmission Date: 20240409
  Serious: Yes (Death)
  Sender: FDA-Public Use
  Company Number: IN-PFIZER INC-PV202400015433

PATIENT
  Age: 45 Year
  Sex: Male

DRUGS (3)
  1. CRIZOTINIB [Suspect]
     Active Substance: CRIZOTINIB
     Indication: Lung neoplasm malignant
     Dosage: 250 MG, 2X/DAY
     Route: 048
     Dates: end: 20240224
  2. BECOSULES Z [Concomitant]
     Dosage: 1 CAP OD
  3. PAN [Concomitant]
     Dosage: 1 TAB OD

REACTIONS (2)
  - Completed suicide [Fatal]
  - Decreased appetite [Unknown]

NARRATIVE: CASE EVENT DATE: 20240224
